FAERS Safety Report 6239364-5 (Version None)
Quarter: 2009Q3

REPORT INFORMATION
  Report Type: 
  Country: None (occurrence: None)
  Receive Date: 20090618
  Receipt Date: 20090618
  Transmission Date: 20100115
  Serious: No
  Sender: FDA-Public Use
  Company Number: None

PATIENT
  Age: 44 Year
  Sex: Male
  Weight: 106.5953 kg

DRUGS (1)
  1. ZICAM COLD REMEDY NASAL GEL MATRIXX INITIATIVES [Suspect]
     Indication: NASOPHARYNGITIS
     Dosage: 2 SQUIRTS 1 NASAL
     Route: 045
     Dates: start: 20080327, end: 20080327

REACTIONS (3)
  - ANOSMIA [None]
  - DYSPNOEA [None]
  - NASAL DISCOMFORT [None]
